FAERS Safety Report 19416416 (Version 1)
Quarter: 2021Q2

REPORT INFORMATION
  Report Type: Spontaneous
  Country: GB (occurrence: GB)
  Receive Date: 20210614
  Receipt Date: 20210614
  Transmission Date: 20210717
  Serious: Yes (Other)
  Sender: FDA-Public Use
  Company Number: GB-PFIZER INC-2021655728

PATIENT
  Age: 44 Year
  Sex: Female
  Weight: 60 kg

DRUGS (1)
  1. DACOMITINIB [Suspect]
     Active Substance: DACOMITINIB
     Indication: CHEMOTHERAPY
     Dosage: 45 MG
     Route: 048
     Dates: start: 20210506, end: 20210528

REACTIONS (2)
  - Corneal abrasion [Not Recovered/Not Resolved]
  - Drug eruption [Recovering/Resolving]

NARRATIVE: CASE EVENT DATE: 20210515
